FAERS Safety Report 7477617-3 (Version None)
Quarter: 2011Q2

REPORT INFORMATION
  Report Type: 
  Country: None (occurrence: None)
  Receive Date: 20110513
  Receipt Date: 20110110
  Transmission Date: 20111010
  Serious: Yes (Death)
  Sender: FDA-Public Use
  Company Number: US-BAYER-201039007NA

PATIENT
  Age: 24 Year
  Sex: Female

DRUGS (10)
  1. AZITHROMYCIN [Concomitant]
     Dosage: 250 MG, UNK
  2. ALBUTEROL [Concomitant]
  3. ALEVE NOS [Concomitant]
  4. MOTRIN [Concomitant]
     Indication: CHEST PAIN
     Dosage: 800 MG, UNK
  5. PREDNISONE [Concomitant]
     Dosage: 10 MG, UNK
  6. PRILOSEC [Concomitant]
     Dosage: 20 MG, UNK
  7. REQUIP [Concomitant]
     Dosage: 0.25 MG, UNK
  8. ADVAIR DISKUS 100/50 [Concomitant]
     Dosage: 100/50MCG
  9. METHYLPREDNISOLONE [Concomitant]
     Dosage: 4 MG, UNK
  10. YASMIN [Suspect]
     Route: 048
     Dates: start: 20051109, end: 20060803

REACTIONS (1)
  - PULMONARY EMBOLISM [None]
